FAERS Safety Report 6974626-5 (Version None)
Quarter: 2010Q3

REPORT INFORMATION
  Report Type: 
  Country: None (occurrence: None)
  Receive Date: 20100909
  Receipt Date: 20081201
  Transmission Date: 20110219
  Serious: No
  Sender: FDA-Public Use
  Company Number: US-WYE-H07047808

PATIENT
  Sex: Female
  Weight: 65.83 kg

DRUGS (2)
  1. LYBREL [Suspect]
     Indication: ENDOMETRIOSIS
     Route: 048
     Dates: start: 20081105
  2. BACTRIM [Interacting]
     Indication: ACNE
     Dosage: UNKNOWN
     Route: 065

REACTIONS (3)
  - ACNE [None]
  - CONDITION AGGRAVATED [None]
  - DRUG INTERACTION [None]
